FAERS Safety Report 4383726-8 (Version None)
Quarter: 2004Q2

REPORT INFORMATION
  Report Type: 
  Country: None (occurrence: None)
  Receive Date: 20040608
  Receipt Date: 20030811
  Transmission Date: 20050107
  Serious: Yes (Other)
  Sender: FDA-Public Use
  Company Number: 200312799BCC

PATIENT
  Age: 79 Year
  Sex: Female
  Weight: 94.3482 kg

DRUGS (4)
  1. ALEVE [Suspect]
     Indication: ARTHRITIS
     Dosage: 220 MG, QD, ORAL
     Route: 048
     Dates: start: 20030810
  2. ASPIRIN [Concomitant]
  3. INDERAL [Concomitant]
  4. TRIAMTERENE AND HYDROCHLOROTHIAZIDE [Concomitant]

REACTIONS (2)
  - GENITAL PRURITUS FEMALE [None]
  - RECTAL HAEMORRHAGE [None]
